FAERS Safety Report 4879706-6 (Version None)
Quarter: 2006Q1

REPORT INFORMATION
  Report Type: 
  Country: None (occurrence: None)
  Receive Date: 20060113
  Receipt Date: 20060103
  Transmission Date: 20060701
  Serious: Yes (Hospitalization)
  Sender: FDA-Public Use
  Company Number: DE-BRISTOL-MYERS SQUIBB COMPANY-13238175

PATIENT
  Age: 59 Year
  Sex: Female

DRUGS (4)
  1. CETUXIMAB [Suspect]
     Indication: RECTAL CANCER
     Route: 041
     Dates: start: 20051108
  2. CAPECITABINE [Suspect]
     Indication: RECTAL CANCER
     Route: 048
     Dates: start: 20051215
  3. OXALIPLATIN [Suspect]
     Indication: RECTAL CANCER
     Route: 042
     Dates: start: 20051215
  4. RADIATION THERAPY [Suspect]

REACTIONS (4)
  - DEHYDRATION [None]
  - DIARRHOEA [None]
  - NEUTROPENIA [None]
  - THROMBOCYTOPENIA [None]
